FAERS Safety Report 23378844 (Version 1)
Quarter: 2024Q1

REPORT INFORMATION
  Report Type: Spontaneous
  Country: FR (occurrence: FR)
  Receive Date: 20240108
  Receipt Date: 20240108
  Transmission Date: 20240410
  Serious: Yes (Hospitalization, Other)
  Sender: FDA-Public Use
  Company Number: FR-SA-2023SA270011

PATIENT

DRUGS (1)
  1. ACETAMINOPHEN [Suspect]
     Active Substance: ACETAMINOPHEN
     Indication: Product used for unknown indication
     Dosage: UNK, AMP IM
     Route: 030

REACTIONS (4)
  - Acute hepatic failure [Unknown]
  - Liver injury [Unknown]
  - Toxicity to various agents [Unknown]
  - Overdose [Unknown]
